FAERS Safety Report 9328370 (Version 1)
Quarter: 2013Q2

REPORT INFORMATION
  Report Type: Spontaneous
  Country: US (occurrence: US)
  Receive Date: 20130604
  Receipt Date: 20130604
  Transmission Date: 20140414
  Serious: No
  Sender: FDA-Public Use
  Company Number: US-SANOFI-AVENTIS-2012SA068252

PATIENT
  Age: 62 Year
  Sex: Female
  Weight: 118 kg

DRUGS (17)
  1. LANTUS SOLOSTAR [Suspect]
     Indication: DIABETES MELLITUS
     Route: 058
  2. SOLOSTAR [Suspect]
     Indication: DIABETES MELLITUS
  3. CORTICOSTEROIDS [Suspect]
     Route: 065
  4. JANUVIA [Concomitant]
     Indication: DIABETES MELLITUS
     Dates: start: 2007
  5. AMARYL [Concomitant]
     Indication: DIABETES MELLITUS
     Dates: start: 2007
  6. CEFDINIR [Concomitant]
     Indication: CHRONIC OBSTRUCTIVE PULMONARY DISEASE
     Dates: start: 20120906
  7. CEFDINIR [Concomitant]
     Indication: ASTHMA
     Dates: start: 20120906
  8. CYMBALTA [Concomitant]
     Indication: FIBROMYALGIA
  9. PRILOSEC [Concomitant]
     Indication: GASTROOESOPHAGEAL REFLUX DISEASE
  10. COUMADIN [Concomitant]
     Indication: ATRIAL FIBRILLATION
  11. MAGNESIUM [Concomitant]
     Indication: BONE DISORDER
  12. CEFPROZIL [Concomitant]
     Indication: CHRONIC OBSTRUCTIVE PULMONARY DISEASE
     Dates: start: 20120906
  13. CEFPROZIL [Concomitant]
     Indication: ASTHMA
     Dates: start: 20120906
  14. FUROSEMIDE [Concomitant]
  15. POTASSIUM [Concomitant]
     Indication: BONE DISORDER
  16. SOTALOL [Concomitant]
  17. BENAZEPRIL [Concomitant]
     Indication: HYPERTENSION

REACTIONS (3)
  - Visual impairment [Unknown]
  - Blood glucose increased [Unknown]
  - Hyperhidrosis [Unknown]
